FAERS Safety Report 20856221 (Version 1)
Quarter: 2022Q2

REPORT INFORMATION
  Report Type: Spontaneous
  Country: US (occurrence: US)
  Receive Date: 20220520
  Receipt Date: 20220520
  Transmission Date: 20220721
  Serious: Yes (Other)
  Sender: FDA-Public Use
  Company Number: US-HERON THERAPEUTICS, INC-HRTX-2022-000790

PATIENT
  Age: 80 Year
  Sex: Male

DRUGS (1)
  1. ZYNRELEF [Suspect]
     Active Substance: BUPIVACAINE\MELOXICAM
     Indication: Postoperative analgesia
     Dosage: 400 MG/12 MG, SINGLE
     Route: 065
     Dates: start: 20211216, end: 20211216

REACTIONS (2)
  - Dehiscence [Recovered/Resolved]
  - Suture related complication [Recovered/Resolved]

NARRATIVE: CASE EVENT DATE: 20220117
